FAERS Safety Report 6565146-0 (Version None)
Quarter: 2010Q1

REPORT INFORMATION
  Report Type: 
  Country: None (occurrence: None)
  Receive Date: 20100201
  Receipt Date: 20100122
  Transmission Date: 20100710
  Serious: Yes (Other)
  Sender: FDA-Public Use
  Company Number: B0606353A

PATIENT
  Age: 60 Year
  Sex: Female

DRUGS (6)
  1. PAROXETINE HYDROCHLORIDE [Suspect]
     Indication: MAJOR DEPRESSION
     Route: 048
     Dates: start: 20080624, end: 20080824
  2. DOGMATYL [Concomitant]
     Indication: MAJOR DEPRESSION
     Dosage: 100MG PER DAY
     Route: 048
     Dates: start: 20080617, end: 20080714
  3. LENDORMIN [Concomitant]
     Indication: MAJOR DEPRESSION
     Dosage: .25MG PER DAY
     Route: 048
     Dates: start: 20080617, end: 20080801
  4. ROHYPNOL [Concomitant]
     Indication: MAJOR DEPRESSION
     Dosage: 1MG PER DAY
     Route: 048
     Dates: start: 20080623, end: 20090106
  5. MEILAX [Concomitant]
     Indication: MAJOR DEPRESSION
     Route: 048
     Dates: start: 20080703, end: 20080825
  6. LIMAS [Concomitant]
     Indication: MAJOR DEPRESSION
     Dosage: 400MG PER DAY
     Route: 048
     Dates: start: 20080819, end: 20080826

REACTIONS (4)
  - DRUG WITHDRAWAL SYNDROME [None]
  - LOGORRHOEA [None]
  - MANIA [None]
  - PSYCHOMOTOR HYPERACTIVITY [None]
